FAERS Safety Report 10447037 (Version 1)
Quarter: 2014Q3

REPORT INFORMATION
  Report Type: Spontaneous
  Country: US (occurrence: US)
  Receive Date: 20140911
  Receipt Date: 20140911
  Transmission Date: 20150326
  Serious: No
  Sender: FDA-Public Use
  Company Number: US-PFIZER INC-2014248938

PATIENT
  Age: 51 Year
  Sex: Male
  Weight: 68.93 kg

DRUGS (1)
  1. RELPAX [Suspect]
     Active Substance: ELETRIPTAN HYDROBROMIDE
     Indication: CLUSTER HEADACHE
     Dosage: 40 MG, AS NEEDED
     Route: 048
     Dates: end: 2012

REACTIONS (1)
  - Cluster headache [Unknown]
